FAERS Safety Report 17119494 (Version 1)
Quarter: 2019Q4

REPORT INFORMATION
  Report Type: Report from Study
  Country: CO (occurrence: CO)
  Receive Date: 20191206
  Receipt Date: 20191206
  Transmission Date: 20200122
  Serious: Yes (Hospitalization)
  Sender: FDA-Public Use
  Company Number: CO-ROCHE-2436759

PATIENT
  Sex: Female

DRUGS (1)
  1. MABTHERA [Suspect]
     Active Substance: RITUXIMAB
     Indication: ARTHRITIS
     Route: 065

REACTIONS (6)
  - Osteomyelitis [Unknown]
  - Immunodeficiency [Unknown]
  - Wound [Unknown]
  - Joint dislocation [Unknown]
  - Arthropathy [Unknown]
  - White blood cell count decreased [Unknown]
